FAERS Safety Report 4701243-X (Version None)
Quarter: 2005Q2

REPORT INFORMATION
  Report Type: 
  Country: None (occurrence: None)
  Receive Date: 20050628
  Receipt Date: 20050214
  Transmission Date: 20051028
  Serious: Yes (Other)
  Sender: FDA-Public Use
  Company Number: US-MERCK-0502USA01886

PATIENT
  Age: 51 Year
  Sex: Male
  Weight: 104 kg

DRUGS (3)
  1. VIOXX [Suspect]
     Indication: OSTEOARTHRITIS
     Route: 048
     Dates: start: 20000101, end: 20040901
  2. CELEBREX [Concomitant]
     Route: 065
     Dates: start: 20030301, end: 20040101
  3. CELEBREX [Concomitant]
     Route: 065
     Dates: start: 20030301, end: 20040101

REACTIONS (8)
  - ATHEROSCLEROSIS [None]
  - BLOOD CHOLESTEROL INCREASED [None]
  - BLOOD TRIGLYCERIDES INCREASED [None]
  - CARDIAC DISORDER [None]
  - CARDIAC FAILURE CONGESTIVE [None]
  - CORONARY ARTERY DISEASE [None]
  - DEPRESSION [None]
  - POST-TRAUMATIC STRESS DISORDER [None]
